FAERS Safety Report 9301754 (Version 1)
Quarter: 2013Q2

REPORT INFORMATION
  Report Type: Spontaneous
  Country: US (occurrence: US)
  Receive Date: 20130521
  Receipt Date: 20130521
  Transmission Date: 20140414
  Serious: No
  Sender: FDA-Public Use
  Company Number: US-ALEXION-A201300773

PATIENT
  Sex: Female
  Weight: 51.43 kg

DRUGS (2)
  1. SOLIRIS 300MG [Suspect]
     Indication: HAEMOLYTIC URAEMIC SYNDROME
     Dosage: 900 MG, UNK
     Route: 042
     Dates: start: 20130122
  2. SOLIRIS 300MG [Suspect]
     Dosage: 1200 MG, UNK
     Route: 042

REACTIONS (1)
  - Blood creatinine increased [Recovering/Resolving]
